FAERS Safety Report 14828378 (Version 3)
Quarter: 2023Q1

REPORT INFORMATION
  Report Type: Spontaneous
  Country: US (occurrence: None)
  Receive Date: 20180430
  Receipt Date: 20230308
  Transmission Date: 20230418
  Serious: Yes (Hospitalization, Other)
  Sender: FDA-Public Use
  Company Number: 2018SE50320

PATIENT
  Age: 892 Month
  Sex: Male
  Weight: 108.9 kg

DRUGS (77)
  1. NEXIUM [Suspect]
     Active Substance: ESOMEPRAZOLE MAGNESIUM
     Indication: Gastrooesophageal reflux disease
     Route: 048
     Dates: start: 20090207, end: 201203
  2. NEXIUM [Suspect]
     Active Substance: ESOMEPRAZOLE MAGNESIUM
     Indication: Gastrooesophageal reflux disease
     Route: 048
     Dates: start: 20120522
  3. NEXIUM [Suspect]
     Active Substance: ESOMEPRAZOLE MAGNESIUM
     Indication: Gastrooesophageal reflux disease
     Route: 048
     Dates: start: 20120628
  4. NEXIUM [Suspect]
     Active Substance: ESOMEPRAZOLE MAGNESIUM
     Indication: Gastrooesophageal reflux disease
     Route: 048
     Dates: start: 20120126
  5. NORVASC [Concomitant]
     Active Substance: AMLODIPINE BESYLATE
     Indication: Hypertension
     Dates: start: 2013, end: 2016
  6. AMMONIUM LACTATE [Concomitant]
     Active Substance: AMMONIUM LACTATE
     Indication: Dry skin
     Dates: start: 2007, end: 2016
  7. AMOXICILLIN [Concomitant]
     Active Substance: AMOXICILLIN
     Indication: Infection
     Dates: start: 2008, end: 2010
  8. AMOXICILLIN CLAVLANATE [Concomitant]
     Indication: Infection
     Dates: start: 2008
  9. ASTELIN [Concomitant]
     Active Substance: AZELASTINE HYDROCHLORIDE
     Indication: Hypersensitivity
     Dates: start: 2008
  10. ATENOLOL [Concomitant]
     Active Substance: ATENOLOL
     Indication: Hypertension
     Dates: start: 2009, end: 2010
  11. AVELOX [Concomitant]
     Active Substance: MOXIFLOXACIN HYDROCHLORIDE
     Indication: Infection
     Dates: start: 2008
  12. ADOVART [Concomitant]
     Indication: Benign prostatic hyperplasia
     Dates: start: 2012, end: 2015
  13. AZITHROMYCIN [Concomitant]
     Active Substance: AZITHROMYCIN
     Indication: Infection
     Dates: start: 2008, end: 2016
  14. INSULIN NOS [Concomitant]
     Active Substance: INSULIN NOS
     Indication: Diabetes mellitus
     Dates: start: 2007, end: 2011
  15. CALCITRIOL [Concomitant]
     Active Substance: CALCITRIOL
     Indication: Calcium deficiency
     Dates: start: 2013, end: 2014
  16. CARVEDILOL [Concomitant]
     Active Substance: CARVEDILOL
     Indication: Hypertension
     Dates: start: 2015, end: 2018
  17. AMMONIUM CHLORIDE\DEXTROMETHORPHAN\SODIUM CITRATE [Concomitant]
     Active Substance: AMMONIUM CHLORIDE\DEXTROMETHORPHAN\SODIUM CITRATE
     Indication: Cough
     Dates: start: 2013
  18. CILOSTAZOL [Concomitant]
     Active Substance: CILOSTAZOL
     Indication: Intermittent claudication
     Dates: start: 2012
  19. CIPROFLOXACIN HYDROCHLORIDE [Concomitant]
     Active Substance: CIPROFLOXACIN HYDROCHLORIDE
     Indication: Infection
     Dates: start: 2011
  20. CLOBETASOL PROP [Concomitant]
     Indication: Skin disorder
     Dates: start: 2007
  21. CLONIDINE [Concomitant]
     Active Substance: CLONIDINE
     Indication: Hypertension
     Dates: start: 2012, end: 2016
  22. DIPHENOXYLATE ATROPINE [Concomitant]
     Indication: Diarrhoea
     Dates: start: 2011
  23. COLACE [Concomitant]
     Active Substance: DOCUSATE SODIUM
     Indication: Constipation
     Dates: start: 2012
  24. ARICEPT [Concomitant]
     Active Substance: DONEPEZIL HYDROCHLORIDE
     Indication: Dementia Alzheimer^s type
     Dates: start: 2012, end: 2016
  25. EFFIENT [Concomitant]
     Active Substance: PRASUGREL HYDROCHLORIDE
     Indication: Anticoagulant therapy
     Dates: start: 2011
  26. FERROUS SULFATE [Concomitant]
     Active Substance: FERROUS SULFATE
     Indication: Anaemia
     Dates: start: 2009, end: 2012
  27. FLOMAX [Concomitant]
     Active Substance: TAMSULOSIN HYDROCHLORIDE
     Indication: Benign prostatic hyperplasia
     Dates: start: 2007, end: 2011
  28. FLUZONE [Concomitant]
     Active Substance: INFLUENZA A VIRUS A/CALIFORNIA/7/2009 X-179A (H1N1) ANTIGEN (FORMALDEHYDE INACTIVATED)\INFLUENZA A V
     Dates: start: 2014
  29. FOLIC ACID [Concomitant]
     Active Substance: FOLIC ACID
     Indication: Vitamin supplementation
     Dates: start: 2009, end: 2016
  30. LASIX [Concomitant]
     Active Substance: FUROSEMIDE
     Indication: Oedema
     Dates: start: 2012, end: 2016
  31. LOPID [Concomitant]
     Active Substance: GEMFIBROZIL
     Indication: Diabetes mellitus
     Dates: start: 2009, end: 2012
  32. GUAIFENESIN CODEINE [Concomitant]
     Indication: Nasopharyngitis
     Dates: start: 2015
  33. GUAIFENESIN CODEINE [Concomitant]
     Indication: Cough
     Dates: start: 2015
  34. APRESOLINE HYDROCHLORIDE [Concomitant]
     Active Substance: HYDRALAZINE HYDROCHLORIDE
     Indication: Hypertension
     Dates: start: 2012, end: 2013
  35. IBUPROFEN [Concomitant]
     Active Substance: IBUPROFEN
     Indication: Inflammation
     Dates: start: 2010
  36. KLOR-CON [Concomitant]
     Active Substance: POTASSIUM CHLORIDE
     Dates: start: 2012
  37. LANTUS [Concomitant]
     Active Substance: INSULIN GLARGINE
     Indication: Diabetes mellitus
     Dates: start: 2012
  38. LEVOFLOXACIN [Concomitant]
     Active Substance: LEVOFLOXACIN
     Indication: Infection
     Dates: start: 2011
  39. LISINOPRIL [Concomitant]
     Active Substance: LISINOPRIL
     Indication: Hypertension
     Dates: start: 2013, end: 2014
  40. LYRICA [Concomitant]
     Active Substance: PREGABALIN
     Indication: Neuralgia
     Dates: start: 2013, end: 2014
  41. METFORMIN [Concomitant]
     Active Substance: METFORMIN HYDROCHLORIDE
     Dates: start: 2012, end: 2016
  42. LOPRESSOR [Concomitant]
     Active Substance: METOPROLOL TARTRATE
     Indication: Hypertension
     Dates: start: 2012, end: 2016
  43. NOVOLIN NOS [Concomitant]
     Active Substance: INSULIN HUMAN
     Indication: Diabetes mellitus
     Dates: start: 2011, end: 2016
  44. NYSTATIN [Concomitant]
     Active Substance: NYSTATIN
     Indication: Skin infection
     Dates: start: 2012
  45. OFLOXACIN [Concomitant]
     Active Substance: OFLOXACIN
     Indication: Infection
     Dates: start: 2015, end: 2016
  46. ACETAMINOPHEN\OXYCODONE HYDROCHLORIDE [Concomitant]
     Active Substance: ACETAMINOPHEN\OXYCODONE HYDROCHLORIDE
     Indication: Pain
     Dates: start: 2012, end: 2016
  47. PLAVIX [Concomitant]
     Active Substance: CLOPIDOGREL BISULFATE
     Indication: Anticoagulant therapy
     Dates: start: 2009, end: 2016
  48. PREDNISOLONE [Concomitant]
     Active Substance: PREDNISOLONE
     Indication: Inflammation
     Dates: start: 2009, end: 2016
  49. SIMVASTATIN [Concomitant]
     Active Substance: SIMVASTATIN
     Indication: Blood cholesterol increased
     Dates: start: 2014, end: 2016
  50. TERAZOSIN [Concomitant]
     Active Substance: TERAZOSIN HYDROCHLORIDE
     Indication: Benign prostatic hyperplasia
     Dates: start: 2014, end: 2016
  51. TERAZOSIN [Concomitant]
     Active Substance: TERAZOSIN HYDROCHLORIDE
     Indication: Hypertension
     Dates: start: 2014, end: 2016
  52. TRAMADOL HCL [Concomitant]
     Active Substance: TRAMADOL HYDROCHLORIDE
     Indication: Pain
     Dates: start: 2014, end: 2016
  53. ZETIA [Concomitant]
     Active Substance: EZETIMIBE
     Indication: Blood cholesterol increased
     Dates: start: 2014, end: 2016
  54. PEPCID [Concomitant]
     Active Substance: FAMOTIDINE
     Dates: start: 200903, end: 201112
  55. ZANTAC [Concomitant]
     Active Substance: RANITIDINE HYDROCHLORIDE
     Dates: start: 200907, end: 201109
  56. ASPIRIN [Concomitant]
     Active Substance: ASPIRIN
     Dates: start: 200907, end: 201109
  57. VITAMIN D [Concomitant]
     Active Substance: VITAMIN D NOS
     Dates: start: 200907, end: 201109
  58. LIDOCAINE HYDROCHLORIDE [Concomitant]
     Active Substance: LIDOCAINE HYDROCHLORIDE
     Dates: start: 200907, end: 201109
  59. VITAMIN B12 [Concomitant]
     Active Substance: CYANOCOBALAMIN
     Dates: start: 200907, end: 201109
  60. EUCERIN [Concomitant]
     Active Substance: ENSULIZOLE\EUCERIN\OCTINOXATE\OCTISALATE\TITANIUM DIOXIDE\ZINC OXIDE
  61. HEPARIN [Concomitant]
     Active Substance: HEPARIN SODIUM
  62. GEMFIBROZIL [Concomitant]
     Active Substance: GEMFIBROZIL
  63. ACETAMINOPHEN [Concomitant]
     Active Substance: ACETAMINOPHEN
  64. BISACODYL [Concomitant]
     Active Substance: BISACODYL
  65. MILK OF MAGNESIA [Concomitant]
     Active Substance: MAGNESIUM HYDROXIDE
  66. SENNA [Concomitant]
     Active Substance: SENNA LEAF\SENNOSIDES\SENNOSIDES A AND B
  67. COLLAGENASE SANTYL [Concomitant]
     Active Substance: COLLAGENASE CLOSTRIDIUM HISTOLYTICUM
  68. MUPIROCIN [Concomitant]
     Active Substance: MUPIROCIN
  69. LOSARTAN POTASSIUM [Concomitant]
     Active Substance: LOSARTAN POTASSIUM
  70. ZOSTAVAX [Concomitant]
     Active Substance: VARICELLA-ZOSTER VIRUS STRAIN OKA/MERCK LIVE ANTIGEN
  71. KETOROLAC TROMETHAMINE [Concomitant]
     Active Substance: KETOROLAC TROMETHAMINE
  72. PREVNAR [Concomitant]
     Active Substance: PNEUMOCOCCAL 7-VALENT CONJUGATE VACCINE (DIPHTHERIA CRM197 PROTEIN)
  73. GABAPENTIN [Concomitant]
     Active Substance: GABAPENTIN
  74. ATORVASTATIN [Concomitant]
     Active Substance: ATORVASTATIN
     Route: 065
  75. CHOLECALCIFEROL [Concomitant]
     Active Substance: CHOLECALCIFEROL
     Dosage: 25.0UG UNKNOWN
     Route: 048
  76. CEFADROXIL [Concomitant]
     Active Substance: CEFADROXIL
     Dates: start: 20040921
  77. HUMALOG [Concomitant]
     Active Substance: INSULIN LISPRO
     Dates: start: 20041130

REACTIONS (5)
  - Chronic kidney disease [Not Recovered/Not Resolved]
  - Acute kidney injury [Not Recovered/Not Resolved]
  - Renal failure [Not Recovered/Not Resolved]
  - Renal impairment [Unknown]
  - Hyperparathyroidism secondary [Unknown]

NARRATIVE: CASE EVENT DATE: 20120501
